FAERS Safety Report 7269549-0 (Version None)
Quarter: 2011Q1

REPORT INFORMATION
  Report Type: 
  Country: None (occurrence: None)
  Receive Date: 20110202
  Receipt Date: 20110107
  Transmission Date: 20110831
  Serious: No
  Sender: FDA-Public Use
  Company Number: DE-JNJFOC-20101207958

PATIENT
  Sex: Female
  Weight: 70 kg

DRUGS (1)
  1. PALEXIA RETARD [Suspect]
     Indication: PAIN
     Route: 048

REACTIONS (3)
  - NIGHTMARE [None]
  - SWELLING FACE [None]
  - HOT FLUSH [None]
